FAERS Safety Report 22232067 (Version 1)
Quarter: 2023Q2

REPORT INFORMATION
  Report Type: Spontaneous
  Country: US (occurrence: US)
  Receive Date: 20230420
  Receipt Date: 20230420
  Transmission Date: 20230721
  Serious: No
  Sender: FDA-Public Use
  Company Number: US-PTx-2022000033

PATIENT
  Sex: Male

DRUGS (4)
  1. LEUKINE [Suspect]
     Active Substance: SARGRAMOSTIM
     Indication: Metastases to adrenals
     Dosage: 250 MCG UNDER THE SKIN FOR 10 DAYS EVERY 21 DAYS
     Route: 058
  2. STERILE WATER FOR INJECTION [Concomitant]
     Active Substance: WATER
     Indication: Product used for unknown indication
     Dosage: UNKNOWN
     Route: 065
  3. ANCILLARY SUPPLIES [Concomitant]
     Indication: Product used for unknown indication
     Dosage: UNKNOWN
     Route: 065
  4. ALECANSA [Concomitant]
     Indication: Product used for unknown indication
     Dosage: UNKNOWN
     Route: 065

REACTIONS (2)
  - Pruritus [Unknown]
  - Injection site urticaria [Unknown]
